FAERS Safety Report 6368355-9 (Version None)
Quarter: 2009Q3

REPORT INFORMATION
  Report Type: 
  Country: None (occurrence: None)
  Receive Date: 20090909
  Receipt Date: 20090617
  Transmission Date: 20100115
  Serious: No
  Sender: FDA-Public Use
  Company Number: 001082

PATIENT
  Sex: Female
  Weight: 65.7716 kg

DRUGS (7)
  1. ROTIGOTINE [Suspect]
     Indication: PARKINSON'S DISEASE
     Dosage: (6 MG TRANSDERMAL)
     Route: 062
     Dates: start: 20080925
  2. ROTIGOTINE [Suspect]
  3. AZILECT [Concomitant]
  4. SINEMET [Concomitant]
  5. AMANTADINE [Concomitant]
  6. LEXAPRO [Concomitant]
  7. CLONAZEPAM [Concomitant]

REACTIONS (3)
  - EXPIRED DRUG ADMINISTERED [None]
  - GAIT DISTURBANCE [None]
  - PARKINSONIAN GAIT [None]
